FAERS Safety Report 20219054 (Version 1)
Quarter: 2021Q4

REPORT INFORMATION
  Report Type: Report from Study
  Country: US (occurrence: US)
  Receive Date: 20211222
  Receipt Date: 20211222
  Transmission Date: 20220303
  Serious: Yes (Other)
  Sender: FDA-Public Use
  Company Number: US-TEVA-2021-US-1990512

PATIENT
  Sex: Female

DRUGS (14)
  1. AUSTEDO [Interacting]
     Active Substance: DEUTETRABENAZINE
     Dosage: 36 MILLIGRAM DAILY;
     Dates: start: 201709
  2. SINEMET [Interacting]
     Active Substance: CARBIDOPA\LEVODOPA
     Indication: Parkinson^s disease
     Route: 065
  3. DEXILANT [Concomitant]
     Active Substance: DEXLANSOPRAZOLE
  4. FAMOTIDINE [Concomitant]
     Active Substance: FAMOTIDINE
  5. MORPHINE [Concomitant]
     Active Substance: MORPHINE
  6. LISINOPRIL [Concomitant]
     Active Substance: LISINOPRIL
  7. IMITREX [Concomitant]
     Active Substance: SUMATRIPTAN SUCCINATE
  8. VITAMIN D3 [Concomitant]
     Active Substance: CHOLECALCIFEROL
  9. METOPROLOL [Concomitant]
     Active Substance: METOPROLOL
  10. KETOCONAZOLE [Concomitant]
     Active Substance: KETOCONAZOLE
  11. METRONIDAZOLE [Concomitant]
     Active Substance: METRONIDAZOLE
  12. ANASTROZOLE [Concomitant]
     Active Substance: ANASTROZOLE
  13. ASPIRIN [Concomitant]
     Active Substance: ASPIRIN
  14. CALCIUM W/MAGNESIUM/ZINC [Concomitant]

REACTIONS (1)
  - Drug interaction [Unknown]
